FAERS Safety Report 8025175-7 (Version None)
Quarter: 2012Q1

REPORT INFORMATION
  Report Type: 
  Country: None (occurrence: None)
  Receive Date: 20120105
  Receipt Date: 20120101
  Transmission Date: 20120608
  Serious: Yes (Death)
  Sender: FDA-Public Use
  Company Number: US-GLAXOSMITHKLINE-A0959870A

PATIENT
  Age: 42 Year
  Sex: Female

DRUGS (1)
  1. TYKERB [Suspect]
     Indication: BRAIN NEOPLASM MALIGNANT
     Dosage: 1250MG PER DAY
     Route: 065

REACTIONS (2)
  - OFF LABEL USE [None]
  - DEATH [None]
